FAERS Safety Report 5075080-3 (Version None)
Quarter: 2006Q3

REPORT INFORMATION
  Report Type: 
  Country: None (occurrence: None)
  Receive Date: 20060809
  Receipt Date: 20060725
  Transmission Date: 20061208
  Serious: Yes (Hospitalization)
  Sender: FDA-Public Use
  Company Number: FR-BAYER-200610728BFR

PATIENT
  Age: 59 Year
  Sex: Male
  Weight: 77 kg

DRUGS (3)
  1. SORAFENIB [Suspect]
     Indication: METASTATIC MALIGNANT MELANOMA
     Dosage: TOTAL DAILY DOSE: 800 MG  UNIT DOSE: 400 MG
     Route: 048
     Dates: start: 20060704, end: 20060724
  2. DACARBAZINE [Suspect]
     Indication: METASTATIC MALIGNANT MELANOMA
  3. OLMETEC [Concomitant]
     Indication: HYPERTENSION

REACTIONS (4)
  - BLOOD PRESSURE INCREASED [None]
  - HEPATIC CYST [None]
  - PULMONARY ARTERY THROMBOSIS [None]
  - PULMONARY EMBOLISM [None]
